FAERS Safety Report 8557498-7 (Version None)
Quarter: 2012Q3

REPORT INFORMATION
  Report Type: 
  Country: None (occurrence: None)
  Receive Date: 20120725
  Receipt Date: 20120725
  Transmission Date: 20120928
  Serious: Yes (Other)
  Sender: FDA-Public Use
  Company Number: None

PATIENT
  Sex: Female

DRUGS (1)
  1. ADVAIR DISKUS 250/50 [Suspect]
     Indication: ASTHMA
     Dosage: 250/50 TWICE A DAY PO
     Route: 048
     Dates: start: 20120501, end: 20120723

REACTIONS (3)
  - DRUG INEFFECTIVE [None]
  - PRODUCT PHYSICAL ISSUE [None]
  - PRODUCT TASTE ABNORMAL [None]
